FAERS Safety Report 17082331 (Version 1)
Quarter: 2019Q4

REPORT INFORMATION
  Report Type: Report from Study
  Country: None (occurrence: BR)
  Receive Date: 20191127
  Receipt Date: 20191127
  Transmission Date: 20200122
  Serious: Yes (Other)
  Sender: FDA-Public Use
  Company Number: BR-ABBVIE-19K-020-2983152-00

PATIENT
  Sex: Male
  Weight: 145 kg

DRUGS (1)
  1. HUMIRA [Suspect]
     Active Substance: ADALIMUMAB
     Indication: HIDRADENITIS
     Route: 058
     Dates: start: 20190827

REACTIONS (5)
  - Impaired healing [Unknown]
  - Limb injury [Unknown]
  - Impaired healing [Not Recovered/Not Resolved]
  - Wound [Recovered/Resolved]
  - Skin lesion [Not Recovered/Not Resolved]

NARRATIVE: CASE EVENT DATE: 2019
